FAERS Safety Report 12146547 (Version 1)
Quarter: 2016Q1

REPORT INFORMATION
  Report Type: Spontaneous
  Country: US (occurrence: US)
  Receive Date: 20160304
  Receipt Date: 20160304
  Transmission Date: 20160526
  Serious: No
  Sender: FDA-Public Use
  Company Number: US-MYLANLABS-2015M1045689

PATIENT
  Sex: Female

DRUGS (2)
  1. LIDOCAINE PATCH [Suspect]
     Active Substance: LIDOCAINE
     Indication: BACK PAIN
     Dosage: Q12H
     Route: 003
     Dates: start: 201511, end: 201601
  2. LIDOCAINE PATCH [Suspect]
     Active Substance: LIDOCAINE
     Indication: OFF LABEL USE

REACTIONS (4)
  - Product quality issue [Not Recovered/Not Resolved]
  - Pain [Not Recovered/Not Resolved]
  - Product adhesion issue [Recovered/Resolved]
  - Application site perspiration [Not Recovered/Not Resolved]
